FAERS Safety Report 9485634 (Version 1)
Quarter: 2013Q3

REPORT INFORMATION
  Report Type: Spontaneous
  Country: US (occurrence: US)
  Receive Date: 20130829
  Receipt Date: 20130829
  Transmission Date: 20140515
  Serious: No
  Sender: FDA-Public Use
  Company Number: US-009507513-1308USA011947

PATIENT
  Age: 14 Year
  Sex: Female
  Weight: 100 kg

DRUGS (1)
  1. IMPLANON [Suspect]
     Indication: CONTRACEPTION
     Dosage: 68 MG
     Route: 059
     Dates: start: 20110815

REACTIONS (5)
  - Kidney infection [Recovered/Resolved]
  - Amenorrhoea [Unknown]
  - Kidney infection [Recovered/Resolved]
  - Dysmenorrhoea [Unknown]
  - Hypomenorrhoea [Unknown]
